FAERS Safety Report 8504820-3 (Version None)
Quarter: 2012Q3

REPORT INFORMATION
  Report Type: 
  Country: None (occurrence: None)
  Receive Date: 20120712
  Receipt Date: 20120619
  Transmission Date: 20120928
  Serious: No
  Sender: FDA-Public Use
  Company Number: US-BIOGENIDEC-2012BI024495

PATIENT
  Sex: Female

DRUGS (1)
  1. AVONEX [Suspect]
     Indication: MULTIPLE SCLEROSIS
     Route: 030
     Dates: end: 20110101

REACTIONS (7)
  - INFECTION SUSCEPTIBILITY INCREASED [None]
  - LUNG INFECTION [None]
  - COGNITIVE DISORDER [None]
  - ABSCESS [None]
  - NAUSEA [None]
  - INFLUENZA LIKE ILLNESS [None]
  - FEELING ABNORMAL [None]
